FAERS Safety Report 4493074-3 (Version None)
Quarter: 2004Q4

REPORT INFORMATION
  Report Type: 
  Country: None (occurrence: None)
  Receive Date: 20041104
  Receipt Date: 20041006
  Transmission Date: 20050328
  Serious: Yes (Hospitalization)
  Sender: FDA-Public Use
  Company Number: OC0402

PATIENT
  Sex: Female

DRUGS (2)
  1. LOTRONEX [Suspect]
     Indication: DRUG USE FOR UNKNOWN INDICATION
     Dosage: 1MG PER DAY
     Route: 048
  2. UNSPECIFIED MEDICATIONS [Concomitant]

REACTIONS (1)
  - CONSTIPATION [None]
